FAERS Safety Report 21378132 (Version 2)
Quarter: 2022Q4

REPORT INFORMATION
  Report Type: Report from Study
  Country: BE (occurrence: BE)
  Receive Date: 20220926
  Receipt Date: 20221013
  Transmission Date: 20230112
  Serious: Yes (Hospitalization, Other)
  Sender: FDA-Public Use
  Company Number: BE-BRISTOL-MYERS SQUIBB COMPANY-2022-110888

PATIENT
  Age: 64 Year
  Sex: Female
  Weight: 90.5 kg

DRUGS (33)
  1. LENALIDOMIDE [Suspect]
     Active Substance: LENALIDOMIDE
     Indication: Plasma cell myeloma
     Route: 048
     Dates: start: 20220624, end: 20220629
  2. TALQUETAMAB [Suspect]
     Active Substance: TALQUETAMAB
     Indication: Plasma cell myeloma
     Route: 058
     Dates: start: 20220517, end: 20220624
  3. FILGRASTIM [Concomitant]
     Active Substance: FILGRASTIM
     Indication: Neutropenia
     Route: 058
     Dates: start: 20220622, end: 20220624
  4. ACYCLOVIR [Concomitant]
     Active Substance: ACYCLOVIR
     Indication: Prophylaxis
     Route: 048
     Dates: start: 20201127
  5. HYPROMELLOSES [Concomitant]
     Active Substance: HYPROMELLOSES
     Indication: Xerophthalmia
     Dosage: 1 IN 1 AS REQUIRED
     Route: 047
     Dates: start: 20220520
  6. FOLIC ACID [Concomitant]
     Active Substance: FOLIC ACID
     Indication: Nutritional supplementation
     Dosage: 1 IN 1 D
     Route: 048
     Dates: start: 20220608
  7. CETIRIZINE HYDROCHLORIDE [Concomitant]
     Active Substance: CETIRIZINE HYDROCHLORIDE
     Indication: Eczema
     Dosage: 1 IN 1 AS REQUIRED
     Route: 048
     Dates: start: 20220527
  8. CETIRIZINE HYDROCHLORIDE [Concomitant]
     Active Substance: CETIRIZINE HYDROCHLORIDE
     Indication: Adverse drug reaction
     Dosage: 1 IN 1 TOTAL
     Route: 048
     Dates: start: 20220622, end: 20220622
  9. INSULIN NOS [Concomitant]
     Active Substance: INSULIN NOS
     Indication: Steroid diabetes
     Dosage: 4 (1 IN 0.25 D)
     Route: 058
     Dates: start: 20220612, end: 20220617
  10. SCHERIPROCT [CINCHOCAINE HYDROCHLORIDE;PREDNISOLONE CAPROATE] [Concomitant]
     Indication: Haemorrhoids
     Dosage: 5 TO 1.9 1 IN 1 AS REQUIRED
     Route: 061
     Dates: start: 20220617
  11. SCHERIPROCT [CINCHOCAINE HYDROCHLORIDE;PREDNISOLONE CAPROATE] [Concomitant]
     Dosage: 30 GM,1 IN 0.5 D
     Route: 054
     Dates: start: 20220618
  12. AMOXICILLIN\CLAVULANIC ACID [Concomitant]
     Active Substance: AMOXICILLIN\CLAVULANIC ACID
     Indication: Pyrexia
     Dosage: 875 TO 125? 1 IN 0.5 D
     Route: 048
     Dates: start: 20220620, end: 20220620
  13. AMOXICILLIN\CLAVULANIC ACID [Concomitant]
     Active Substance: AMOXICILLIN\CLAVULANIC ACID
     Indication: C-reactive protein increased
     Dosage: 875 /125?1 IN 0.33 D
     Route: 048
     Dates: start: 20220629, end: 20220630
  14. AMOXICILLIN\CLAVULANIC ACID [Concomitant]
     Active Substance: AMOXICILLIN\CLAVULANIC ACID
     Dosage: 480 MCG,1 IN 1 TOTAL
     Route: 058
     Dates: start: 20220630, end: 20220705
  15. ARTIFICIAL TEARS [HYPROMELLOSE] [Concomitant]
     Indication: Xerophthalmia
     Dosage: PRN
     Route: 047
     Dates: start: 20220520
  16. PANTOPRAZOLE [Concomitant]
     Active Substance: PANTOPRAZOLE
     Indication: Gastrointestinal disorder therapy
     Route: 048
     Dates: start: 20201211
  17. ALGOSTASE [Concomitant]
     Indication: Cancer pain
     Dosage: 1 IN 1 AS REQUIRED
     Route: 048
     Dates: start: 20220110
  18. ALLOPURINOL [Concomitant]
     Active Substance: ALLOPURINOL
     Indication: Prophylaxis
     Route: 048
     Dates: start: 20220517
  19. ACETAMINOPHEN [Concomitant]
     Active Substance: ACETAMINOPHEN
     Indication: Bone pain
     Dosage: 1 IN 1 AS REQUIRED
     Route: 042
     Dates: start: 20220517
  20. VITAPANTOL [Concomitant]
     Indication: Inflammation
     Dosage: 1 IN 1 AS REQUIRED
     Route: 061
     Dates: start: 20220517
  21. TRAMADOL HYDROCHLORIDE [Concomitant]
     Active Substance: TRAMADOL HYDROCHLORIDE
     Indication: Back pain
     Dosage: 1 IN 1 AS REQUIRED
     Route: 048
     Dates: start: 20220518
  22. PIPERACILLIN AND TAZOBACTAM [Concomitant]
     Active Substance: PIPERACILLIN SODIUM\TAZOBACTAM SODIUM
     Indication: Cytokine release syndrome
     Dosage: 4000/500 1 IN 0.25 D
     Route: 042
     Dates: start: 20220525
  23. PIPERACILLIN AND TAZOBACTAM [Concomitant]
     Active Substance: PIPERACILLIN SODIUM\TAZOBACTAM SODIUM
     Dosage: 4000/500 1 IN 0.25 D
     Route: 048
     Dates: start: 20220630, end: 20220706
  24. AMIKACIN [Concomitant]
     Active Substance: AMIKACIN
     Indication: Febrile neutropenia
     Dosage: 1 IN 1 TOTAL
     Route: 042
     Dates: start: 20220621, end: 20220621
  25. MOVICOL [Concomitant]
     Active Substance: POLYETHYLENE GLYCOL 3350\POTASSIUM CHLORIDE\SODIUM BICARBONATE\SODIUM CHLORIDE
     Indication: Constipation
     Route: 048
     Dates: start: 20220621, end: 20220624
  26. MOVICOL [Concomitant]
     Active Substance: POLYETHYLENE GLYCOL 3350\POTASSIUM CHLORIDE\SODIUM BICARBONATE\SODIUM CHLORIDE
     Route: 048
     Dates: start: 20220701
  27. MEROPENEM [Concomitant]
     Active Substance: MEROPENEM
     Indication: Febrile neutropenia
     Dosage: 1 GM 1 IN 0.38 D
     Route: 042
     Dates: start: 20220621, end: 20220625
  28. FUROSEMIDE [Concomitant]
     Active Substance: FUROSEMIDE
     Indication: Diuretic therapy
     Dosage: 20 MG 1 IN 1 TOTAL
     Route: 042
     Dates: start: 20220622, end: 20220622
  29. PRIVIGEN [Concomitant]
     Active Substance: HUMAN IMMUNOGLOBULIN G
     Indication: Product used for unknown indication
     Dosage: 1 IN 1 TOTAL
     Route: 042
     Dates: start: 20220622, end: 20220622
  30. MINERAL OIL\PETROLATUM\WAX, EMULSIFYING [Concomitant]
     Active Substance: MINERAL OIL\PETROLATUM\WAX, EMULSIFYING
     Indication: Eczema
     Dosage: PRN
     Route: 061
     Dates: start: 20220528
  31. MINERAL OIL\PETROLATUM\WAX, EMULSIFYING [Concomitant]
     Active Substance: MINERAL OIL\PETROLATUM\WAX, EMULSIFYING
     Indication: Skin exfoliation
  32. CALCIUM\CHOLECALCIFEROL [Concomitant]
     Active Substance: CALCIUM\CHOLECALCIFEROL
     Indication: Bone demineralisation
     Route: 048
  33. MORPHINE [Concomitant]
     Active Substance: MORPHINE
     Indication: Headache
     Dosage: 1 IN 1 TOTAL
     Route: 058
     Dates: start: 20220615, end: 20220615

REACTIONS (1)
  - Febrile neutropenia [Recovered/Resolved]

NARRATIVE: CASE EVENT DATE: 20220629
